FAERS Safety Report 24952932 (Version 2)
Quarter: 2025Q1

REPORT INFORMATION
  Report Type: Report from Study
  Country: ES (occurrence: ES)
  Receive Date: 20250211
  Receipt Date: 20250214
  Transmission Date: 20250409
  Serious: No
  Sender: UCB
  Company Number: ES-UCBSA-2025007634

PATIENT
  Sex: Male

DRUGS (1)
  1. FENFLURAMINE HYDROCHLORIDE [Suspect]
     Active Substance: FENFLURAMINE HYDROCHLORIDE
     Indication: Lennox-Gastaut syndrome

REACTIONS (1)
  - Drug ineffective [Unknown]
